FAERS Safety Report 7984039-5 (Version None)
Quarter: 2011Q4

REPORT INFORMATION
  Report Type: 
  Country: None (occurrence: None)
  Receive Date: 20111216
  Receipt Date: 20111209
  Transmission Date: 20120403
  Serious: Yes (Hospitalization, Other)
  Sender: FDA-Public Use
  Company Number: GB-PFIZER INC-2011302103

PATIENT
  Age: 48 Year
  Sex: Male

DRUGS (3)
  1. PROPRANOLOL HCL [Suspect]
     Indication: PORTAL HYPERTENSION
     Dosage: 40 MG, 2X/DAY
     Dates: start: 20070101, end: 20091101
  2. SPIRONOLACTONE [Suspect]
     Indication: ASCITES
     Dosage: UNK
     Dates: end: 20080101
  3. ATENOLOL [Suspect]
     Indication: MYOCARDIAL ISCHAEMIA
     Dosage: UNK
     Dates: start: 20050101

REACTIONS (5)
  - INTESTINAL OBSTRUCTION [None]
  - ASCITES [None]
  - SCLEROSING ENCAPSULATING PERITONITIS [None]
  - GYNAECOMASTIA [None]
  - HYPERKALAEMIA [None]
